FAERS Safety Report 5407674-7 (Version None)
Quarter: 2007Q3

REPORT INFORMATION
  Report Type: 
  Country: None (occurrence: None)
  Receive Date: 20070803
  Receipt Date: 20070801
  Transmission Date: 20080115
  Serious: Yes (Death)
  Sender: FDA-Public Use
  Company Number: TCI2007A03703

PATIENT
  Age: 78 Year
  Sex: Male

DRUGS (3)
  1. LEUPROLIDE ACETATE [Suspect]
     Indication: PROSTATE CANCER STAGE II
     Dosage: 11.25 MG (11.25 MG, 1 IN 12 WK) SUBCUTANEOUS
     Route: 058
     Dates: start: 20061102, end: 20070125
  2. CASODEX [Concomitant]
  3. TAMSULOSIN HCL [Concomitant]

REACTIONS (3)
  - LUNG NEOPLASM MALIGNANT [None]
  - METASTASES TO BONE [None]
  - PLEURAL EFFUSION [None]
